FAERS Safety Report 8487528 (Version 8)
Quarter: 2012Q4

REPORT INFORMATION
  Report Type: 
  Country: US (occurrence: US)
  Receive Date: 20120402
  Receipt Date: 20120911
  Transmission Date: 20130627
  Serious: Yes (Hospitalization, Disabling, Other)
  Sender: FDA-Public Use
  Company Number: US-009507513-1203USA03329

PATIENT

DRUGS (8)
  1. FOSAMAX [Suspect]
     Indication: BONE LOSS
     Dosage: 70 mg, QW
     Route: 048
     Dates: start: 199606, end: 200801
  2. FOSAMAX [Suspect]
     Dosage: 10 mg, UNK
     Route: 048
     Dates: start: 20000518, end: 20010409
  3. FOSAMAX [Suspect]
     Dosage: 70 mg, qd
     Route: 048
  4. FOSAMAX [Suspect]
     Indication: OSTEOPOROSIS
     Dosage: 70 mg, UNK
     Route: 048
     Dates: start: 20080411, end: 20080702
  5. FOSAMAX [Suspect]
     Indication: OSTEOPENIA
  6. ALENDRONATE SODIUM [Suspect]
     Dosage: 70 mg, UNK
     Route: 048
     Dates: start: 20091115, end: 201103
  7. ALENDRONATE SODIUM [Suspect]
     Dosage: 70 mg, UNK
     Route: 048
     Dates: start: 20080914, end: 20090816
  8. PREMARIN [Concomitant]
     Indication: HORMONE REPLACEMENT THERAPY
     Dosage: 0.3 mg, UNK

REACTIONS (65)
  - Fallopian tube disorder [Unknown]
  - Fracture [Unknown]
  - Osteoporosis [Unknown]
  - Explorative laparotomy [Unknown]
  - Foot fracture [Recovered/Resolved]
  - Basal cell carcinoma [Recovering/Resolving]
  - Intervertebral disc degeneration [Unknown]
  - Femur fracture [Recovered/Resolved]
  - Tooth disorder [Unknown]
  - Bone density decreased [Unknown]
  - Intervertebral disc injury [Not Recovered/Not Resolved]
  - Hiatus hernia [Unknown]
  - Hypertension [Unknown]
  - Hypercholesterolaemia [Unknown]
  - Bursitis [Recovering/Resolving]
  - Radiculopathy [Unknown]
  - Femur fracture [Unknown]
  - Diverticulitis [Unknown]
  - Glaucoma [Unknown]
  - Pain [Unknown]
  - Diverticulum [Unknown]
  - Intervertebral disc disorder [Unknown]
  - Dyspnoea [Unknown]
  - Gastrooesophageal reflux disease [Unknown]
  - Overdose [Unknown]
  - Appendix disorder [Unknown]
  - Cataract [Unknown]
  - Cellulitis [Unknown]
  - Foot deformity [Unknown]
  - Foot deformity [Unknown]
  - Exostosis [Unknown]
  - Stress fracture [Unknown]
  - Osteoarthritis [Unknown]
  - Osteosclerosis [Unknown]
  - Osteopenia [Unknown]
  - Barrett^s oesophagus [Unknown]
  - Acquired oesophageal web [Unknown]
  - Stress urinary incontinence [Unknown]
  - Vaginal prolapse [Unknown]
  - Joint dislocation [Unknown]
  - Meniscus injury [Unknown]
  - Headache [Unknown]
  - Arthritis [Unknown]
  - Lung disorder [Unknown]
  - Pneumonia [Unknown]
  - Peptic ulcer [Unknown]
  - Post laminectomy syndrome [Unknown]
  - Nerve compression [Unknown]
  - Arthropathy [Unknown]
  - Asthenia [Unknown]
  - Weight increased [Unknown]
  - Fatigue [Unknown]
  - Tinnitus [Unknown]
  - Dry mouth [Unknown]
  - Oropharyngeal pain [Unknown]
  - Adverse event [Unknown]
  - Pollakiuria [Unknown]
  - Balance disorder [Unknown]
  - Sleep disorder [Unknown]
  - Gastrooesophageal reflux disease [Unknown]
  - Muscle spasms [Unknown]
  - Nausea [Unknown]
  - Sigmoidectomy [Unknown]
  - Small intestinal obstruction [Recovered/Resolved]
  - Diverticulitis [Unknown]
